FAERS Safety Report 5965208-2 (Version None)
Quarter: 2008Q4

REPORT INFORMATION
  Report Type: 
  Country: None (occurrence: None)
  Receive Date: 20081121
  Receipt Date: 20081121
  Transmission Date: 20090506
  Serious: No
  Sender: FDA-Public Use
  Company Number: None

PATIENT

DRUGS (1)
  1. ZYRTEC [Suspect]
     Indication: SEASONAL ALLERGY
     Dosage: 10MG DAILY PO
     Route: 048
     Dates: start: 20060101, end: 20080801

REACTIONS (2)
  - DRUG WITHDRAWAL SYNDROME [None]
  - PRURITUS [None]
